FAERS Safety Report 8887083 (Version 1)
Quarter: 2012Q4

REPORT INFORMATION
  Report Type: 
  Country: DE (occurrence: RU)
  Receive Date: 20121105
  Receipt Date: 20121105
  Transmission Date: 20130627
  Serious: Yes (Other)
  Sender: FDA-Public Use
  Company Number: RU-FRI-1000040082

PATIENT
  Age: 57 Year
  Sex: Female
  Weight: 69 kg

DRUGS (9)
  1. ROFLUMILAST [Suspect]
     Dosage: 500 mcg
     Dates: start: 20121005, end: 20121006
  2. BUDESONIDE [Concomitant]
     Dosage: 2 DF
     Dates: start: 20121003, end: 20121015
  3. BERODUAL [Concomitant]
     Dosage: 1.5 DF
     Dates: start: 20121003, end: 20121015
  4. AMBROXOL [Concomitant]
     Dosage: 6 DF
     Route: 048
     Dates: start: 20121003, end: 20121009
  5. VERAPAMIL [Concomitant]
     Dosage: 0.24 DF
     Dates: start: 20121003, end: 20121015
  6. KLARBANT [Concomitant]
     Dosage: 1 DF
     Dates: start: 20121003, end: 20121007
  7. AMOXICLAV [Concomitant]
     Dosage: 2.4 DF
     Dates: start: 20121009, end: 20121015
  8. FLUCONAZOLE [Concomitant]
  9. FLUIMUCIL [Concomitant]
     Dosage: 9 DF

REACTIONS (2)
  - Asphyxia [Recovered/Resolved]
  - Angioedema [Recovered/Resolved]
